FAERS Safety Report 23994020 (Version 1)
Quarter: 2024Q2

REPORT INFORMATION
  Report Type: Spontaneous
  Country: US (occurrence: US)
  Receive Date: 20240620
  Receipt Date: 20240620
  Transmission Date: 20240716
  Serious: No
  Sender: FDA-Public Use
  Company Number: US-TEVA-VS-3137294

PATIENT

DRUGS (2)
  1. KETOCONAZOLE [Suspect]
     Active Substance: KETOCONAZOLE
     Indication: Rash
     Dosage: 2 TIME DAILY
     Route: 065
  2. TRIAMCINOLONE ACETONIDE [Concomitant]
     Active Substance: TRIAMCINOLONE ACETONIDE
     Dosage: 2 X DAILY FOR 4 DAYS.
     Route: 065

REACTIONS (5)
  - Pruritus [Unknown]
  - Chemical burn of skin [Unknown]
  - Rash erythematous [Not Recovered/Not Resolved]
  - Pain [Unknown]
  - Feeling hot [Unknown]
